FAERS Safety Report 21786171 (Version 1)
Quarter: 2022Q4

REPORT INFORMATION
  Report Type: Spontaneous
  Country: ES (occurrence: ES)
  Receive Date: 20221228
  Receipt Date: 20221228
  Transmission Date: 20230113
  Serious: Yes (Other)
  Sender: FDA-Public Use
  Company Number: ES-SUN PHARMACEUTICAL INDUSTRIES LTD-2022R1-370602

PATIENT
  Age: 72 Year
  Sex: Male

DRUGS (1)
  1. METHYLPHENIDATE [Suspect]
     Active Substance: METHYLPHENIDATE
     Indication: Suicidal ideation
     Dosage: 36 MILLIGRAM
     Route: 065

REACTIONS (1)
  - Therapy partial responder [Unknown]
